FAERS Safety Report 24875565 (Version 1)
Quarter: 2025Q1

REPORT INFORMATION
  Report Type: Spontaneous
  Country: CN (occurrence: CN)
  Receive Date: 20250122
  Receipt Date: 20250122
  Transmission Date: 20250408
  Serious: Yes (Life-Threatening)
  Sender: PFIZER
  Company Number: CN-PFIZER INC-PV202500007745

PATIENT
  Age: 18 Year
  Sex: Male
  Weight: 60 kg

DRUGS (2)
  1. CYTARABINE [Suspect]
     Active Substance: CYTARABINE
     Indication: Adult T-cell lymphoma/leukaemia
     Dosage: 3.5 G, 2X/DAY
     Route: 041
     Dates: start: 20241110, end: 20241111
  2. METHOTREXATE SODIUM [Suspect]
     Active Substance: METHOTREXATE SODIUM
     Indication: Adult T-cell lymphoma/leukaemia
     Dosage: 1.8 G, 1X/DAY
     Route: 041
     Dates: start: 20241109, end: 20241109

REACTIONS (2)
  - White blood cell count decreased [Recovering/Resolving]
  - Neutrophil percentage decreased [Recovering/Resolving]

NARRATIVE: CASE EVENT DATE: 20241119
